FAERS Safety Report 7637190-3 (Version None)
Quarter: 2011Q3

REPORT INFORMATION
  Report Type: 
  Country: None (occurrence: None)
  Receive Date: 20110726
  Receipt Date: 20110712
  Transmission Date: 20111222
  Serious: Yes (Hospitalization)
  Sender: FDA-Public Use
  Company Number: PHHY2011KR63208

PATIENT

DRUGS (2)
  1. KEPPRA [Concomitant]
     Indication: EPILEPSY
     Dosage: 500 MG, BID
  2. TEGRETOL-XR [Suspect]
     Dosage: 200 MG, TID
     Route: 048

REACTIONS (2)
  - FULL BLOOD COUNT ABNORMAL [None]
  - APLASTIC ANAEMIA [None]
